FAERS Safety Report 7996532-X (Version None)
Quarter: 2011Q4

REPORT INFORMATION
  Report Type: 
  Country: None (occurrence: None)
  Receive Date: 20111221
  Receipt Date: 20111212
  Transmission Date: 20120403
  Serious: Yes (Hospitalization, Other)
  Sender: FDA-Public Use
  Company Number: US-BIOGENIDEC-2010BI028741

PATIENT
  Age: 41 Year
  Sex: Female

DRUGS (2)
  1. TYSABRI [Suspect]
     Route: 042
     Dates: start: 20110419
  2. TYSABRI [Suspect]
     Indication: MULTIPLE SCLEROSIS
     Route: 042
     Dates: start: 20080630, end: 20100607

REACTIONS (7)
  - GUN SHOT WOUND [None]
  - PERIPHERAL ISCHAEMIA [None]
  - SUICIDE ATTEMPT [None]
  - MIGRAINE WITH AURA [None]
  - RENAL FAILURE ACUTE [None]
  - CONVULSION [None]
  - DEPRESSION [None]
